FAERS Safety Report 24885455 (Version 1)
Quarter: 2025Q1

REPORT INFORMATION
  Report Type: Spontaneous
  Country: US (occurrence: US)
  Receive Date: 20250124
  Receipt Date: 20250124
  Transmission Date: 20250408
  Serious: Yes (Hospitalization, Other)
  Sender: MALLINCKRODT
  Company Number: US-MALLINCKRODT-MNK202500284

PATIENT
  Age: 63 Year
  Sex: Female
  Weight: 90 kg

DRUGS (27)
  1. CORTICOTROPIN [Suspect]
     Active Substance: CORTICOTROPIN
     Indication: Keratitis
     Route: 058
     Dates: start: 202301
  2. ERYTHROMYCIN [Concomitant]
     Active Substance: ERYTHROMYCIN
  3. AMLODIPINE [Concomitant]
     Active Substance: AMLODIPINE BESYLATE
  4. CARVEDILOL [Concomitant]
     Active Substance: CARVEDILOL
  5. DEXILANT [Concomitant]
     Active Substance: DEXLANSOPRAZOLE
  6. DOCUSATE [Concomitant]
     Active Substance: DOCUSATE
  7. ELIQUIS [Concomitant]
     Active Substance: APIXABAN
  8. FOLIC ACID [Concomitant]
     Active Substance: FOLIC ACID
  9. ISOSORBIDE MONONITRATE [Concomitant]
     Active Substance: ISOSORBIDE MONONITRATE
  10. KETOROLAC [Concomitant]
     Active Substance: KETOROLAC TROMETHAMINE
  11. LISINOPRIL [Concomitant]
     Active Substance: LISINOPRIL
  12. METAXALONE [Concomitant]
     Active Substance: METAXALONE
  13. METHOTREXATE [Concomitant]
     Active Substance: METHOTREXATE
  14. MONTELUKAST [Concomitant]
     Active Substance: MONTELUKAST
  15. MULTIVITAMIN [ASCORBIC ACID;CALCIUM CARBONATE;CYANOCOBALAMIN;NICOTINAM [Concomitant]
  16. REFRESH TEARS [Concomitant]
     Active Substance: CARBOXYMETHYLCELLULOSE SODIUM
  17. VITAMIN B12 [Concomitant]
     Active Substance: CYANOCOBALAMIN
  18. LATANOPROST [Concomitant]
     Active Substance: LATANOPROST
  19. METFORMIN HYDROCHLORIDE [Concomitant]
     Active Substance: METFORMIN HYDROCHLORIDE
  20. NIFEDIPINE [Concomitant]
     Active Substance: NIFEDIPINE
  21. PREGABALIN [Concomitant]
     Active Substance: PREGABALIN
  22. RASUVO [Concomitant]
     Active Substance: METHOTREXATE SODIUM
  23. ROSUVASTATIN [Concomitant]
     Active Substance: ROSUVASTATIN
  24. TRAMADOL [Concomitant]
     Active Substance: TRAMADOL
  25. HYDROCODONE BITARTRATE AND ACETAMINOPHEN [Concomitant]
     Active Substance: ACETAMINOPHEN\HYDROCODONE BITARTRATE
  26. MURO 128 [Concomitant]
     Active Substance: SODIUM CHLORIDE
  27. AMITRIPTYLINE [Concomitant]
     Active Substance: AMITRIPTYLINE

REACTIONS (2)
  - Spinal fracture [Recovering/Resolving]
  - Fall [Unknown]
